FAERS Safety Report 7073896-5 (Version None)
Quarter: 2010Q4

REPORT INFORMATION
  Report Type: 
  Country: None (occurrence: None)
  Receive Date: 20101029
  Receipt Date: 20101027
  Transmission Date: 20110411
  Serious: Yes (Hospitalization)
  Sender: FDA-Public Use
  Company Number: BE-ABBOTT-10P-013-0649435-00

PATIENT
  Sex: Female

DRUGS (2)
  1. CLARITHROMYCINE( BICLAR UNO 500) [Suspect]
     Indication: PRODUCT USED FOR UNKNOWN INDICATION
  2. SINTROM [Interacting]
     Indication: ATRIAL FIBRILLATION

REACTIONS (2)
  - DRUG INTERACTION [None]
  - HAEMORRHAGE [None]
